FAERS Safety Report 18920029 (Version 1)
Quarter: 2021Q1

REPORT INFORMATION
  Report Type: Spontaneous
  Country: NO (occurrence: NO)
  Receive Date: 20210222
  Receipt Date: 20210222
  Transmission Date: 20210420
  Serious: Yes (Hospitalization)
  Sender: FDA-Public Use
  Company Number: NO-TEVA-2021-NO-1881238

PATIENT
  Age: 27 Year
  Sex: Female

DRUGS (3)
  1. RAMIPRIL ACTAVIS TAB 2,5 MG [Suspect]
     Active Substance: RAMIPRIL
     Indication: CARDIAC FAILURE
     Dosage: 1.5 TABLET MORNING, 1 TABLET EVENING
     Dates: start: 2020
  2. BISOPROLOL SANDOZ TAB 1,25 MG [Suspect]
     Active Substance: BISOPROLOL FUMARATE
     Indication: CARDIAC FAILURE
     Dosage: 2 DOSAGE FORMS DAILY; MORNING,EVENING
     Dates: start: 2020
  3. LEVAXIN TAB 75 MIKROG [Concomitant]
     Indication: HYPOTHYROIDISM
     Dosage: 1.5 TABLETS 3 TIMES DAILY AND 1 TABLETS 4 TIMES DAILY
     Dates: start: 2020

REACTIONS (7)
  - Dizziness [Not Recovered/Not Resolved]
  - Asthenia [Not Recovered/Not Resolved]
  - Palpitations [Not Recovered/Not Resolved]
  - Balance disorder [Not Recovered/Not Resolved]
  - Tremor [Not Recovered/Not Resolved]
  - Fatigue [Not Recovered/Not Resolved]
  - Insomnia [Not Recovered/Not Resolved]

NARRATIVE: CASE EVENT DATE: 2020
